FAERS Safety Report 15378799 (Version 1)
Quarter: 2018Q3

REPORT INFORMATION
  Report Type: Spontaneous
  Country: US (occurrence: US)
  Receive Date: 20180801
  Receipt Date: 20180801
  Transmission Date: 20181010
  Serious: No
  Sender: FDA-Public Use
  Company Number: None

PATIENT
  Age: 88 Year
  Sex: Male
  Weight: 72 kg

DRUGS (1)
  1. HYPOCHLOR [Suspect]
     Active Substance: HYPOCHLOROUS ACID
     Indication: EYE DISORDER
     Route: 061

REACTIONS (2)
  - Product advertising issue [None]
  - Product use complaint [None]
